FAERS Safety Report 5286331-4 (Version None)
Quarter: 2007Q1

REPORT INFORMATION
  Report Type: 
  Country: None (occurrence: None)
  Receive Date: 20070116
  Receipt Date: 20061026
  Transmission Date: 20070707
  Serious: No
  Sender: FDA-Public Use
  Company Number: 2006SP003867

PATIENT
  Age: 66 Year
  Sex: Male
  Weight: 70.7611 kg

DRUGS (3)
  1. LUNESTA [Suspect]
     Indication: INSOMNIA
     Dosage: 2 MG;1X;ORAL
     Route: 048
     Dates: start: 20061001, end: 20061001
  2. TOPROL-XL [Concomitant]
  3. TAMSULOSIN HCL [Concomitant]

REACTIONS (2)
  - ABNORMAL DREAMS [None]
  - HALLUCINATION [None]
